FAERS Safety Report 6241819-4 (Version None)
Quarter: 2009Q2

REPORT INFORMATION
  Report Type: 
  Country: None (occurrence: None)
  Receive Date: 20090623
  Receipt Date: 20090612
  Transmission Date: 20091009
  Serious: Yes (Other)
  Sender: FDA-Public Use
  Company Number: US-PFIZER INC-2009227328

PATIENT
  Sex: Female

DRUGS (1)
  1. NARDIL [Suspect]
     Indication: PANIC DISORDER
     Dosage: UNK

REACTIONS (3)
  - COLONOSCOPY [None]
  - ENDODONTIC PROCEDURE [None]
  - KNEE OPERATION [None]
